FAERS Safety Report 6009112-2 (Version None)
Quarter: 2008Q4

REPORT INFORMATION
  Report Type: 
  Country: None (occurrence: None)
  Receive Date: 20081216
  Receipt Date: 20081208
  Transmission Date: 20090506
  Serious: Yes (Hospitalization, Other)
  Sender: FDA-Public Use
  Company Number: OMPQ-NO-0812S-1127

PATIENT
  Age: 67 Year
  Sex: Male

DRUGS (9)
  1. OMNIPAQUE (IOHEXOL) [Suspect]
     Indication: DRUG USE FOR UNKNOWN INDICATION
     Dosage: 100 ML, SINGLE DOSE, I.V.
     Route: 042
     Dates: start: 20081112, end: 20081112
  2. ISOSORBIDE MONONITRATE [Concomitant]
  3. ACETYLSALICYLIC ACID SRT [Concomitant]
  4. CARVEDILOL [Concomitant]
  5. CLARITHROMYCIN [Concomitant]
  6. WARFARIN [Concomitant]
  7. FUROSEMIDE [Concomitant]
  8. ALLOPURINOL [Concomitant]
  9. ALFACAPCIDOL [Concomitant]

REACTIONS (3)
  - BLOOD PRESSURE DECREASED [None]
  - OEDEMA [None]
  - TOXIC SKIN ERUPTION [None]
